FAERS Safety Report 5166828-8 (Version None)
Quarter: 2006Q4

REPORT INFORMATION
  Report Type: 
  Country: None (occurrence: None)
  Receive Date: 20061207
  Receipt Date: 20031113
  Transmission Date: 20070319
  Serious: Yes (Disabling, Other)
  Sender: FDA-Public Use
  Company Number: US-MERCK-0311USA01839

PATIENT
  Age: 59 Year
  Sex: Female
  Weight: 60 kg

DRUGS (9)
  1. FOSAMAX [Suspect]
     Indication: OSTEOPOROSIS PROPHYLAXIS
     Route: 048
     Dates: start: 19960101
  2. FOSAMAX [Suspect]
     Route: 048
     Dates: end: 20020801
  3. TOPROL-XL [Concomitant]
     Indication: HYPERTENSION
     Route: 048
  4. NORVASC [Concomitant]
     Indication: HYPERTENSION
     Route: 048
  5. CLARITIN [Concomitant]
     Indication: HYPERSENSITIVITY
     Route: 065
     Dates: start: 19970101
  6. ZOCOR [Concomitant]
     Indication: BLOOD CHOLESTEROL INCREASED
     Route: 048
     Dates: start: 19970101
  7. CALCIUM CARBONATE [Concomitant]
     Route: 048
     Dates: start: 19970101, end: 20030801
  8. CALCIUM CARBONATE [Concomitant]
     Route: 048
     Dates: start: 20030801
  9. COZAAR [Concomitant]
     Route: 048
     Dates: start: 19970101

REACTIONS (21)
  - ACTIVITIES OF DAILY LIVING IMPAIRED [None]
  - ARTERIOSCLEROSIS CORONARY ARTERY [None]
  - ARTHRALGIA [None]
  - BLOOD CHOLESTEROL INCREASED [None]
  - BONE DISORDER [None]
  - BURSITIS [None]
  - FEMUR FRACTURE [None]
  - INTERVERTEBRAL DISC DEGENERATION [None]
  - LOW TURNOVER OSTEOPATHY [None]
  - LYMPHADENOPATHY [None]
  - MUSCLE DISORDER [None]
  - MUSCULOSKELETAL PAIN [None]
  - NEPHROLITHIASIS [None]
  - PATHOLOGICAL FRACTURE [None]
  - PLEURAL FIBROSIS [None]
  - RIB FRACTURE [None]
  - SPINAL COLUMN STENOSIS [None]
  - SPONDYLOLISTHESIS [None]
  - STRESS FRACTURE [None]
  - TENDON CALCIFICATION [None]
  - TENDONITIS [None]
